FAERS Safety Report 17114717 (Version 2)
Quarter: 2020Q1

REPORT INFORMATION
  Report Type: Report from Study
  Country: US (occurrence: US)
  Receive Date: 20191205
  Receipt Date: 20200117
  Transmission Date: 20200409
  Serious: Yes (Death)
  Sender: FDA-Public Use
  Company Number: US-ROCHE-2482615

PATIENT
  Sex: Female

DRUGS (1)
  1. ACTEMRA [Suspect]
     Active Substance: TOCILIZUMAB
     Indication: RHEUMATOID ARTHRITIS
     Dosage: ON 09/AUG/2018, SHE RECEIVED 424 MG. INFUSE PRESCRIBED DOSE ONCE EVERY 4 WEEKS. DOSE:38,DATE OF TREA
     Route: 042
     Dates: start: 20180809

REACTIONS (1)
  - Death [Fatal]
